FAERS Safety Report 14578707 (Version 1)
Quarter: 2018Q1

REPORT INFORMATION
  Report Type: Spontaneous
  Country: IT (occurrence: IT)
  Receive Date: 20180227
  Receipt Date: 20180227
  Transmission Date: 20180509
  Serious: Yes (Other)
  Sender: FDA-Public Use
  Company Number: IT-SA-2018SA044952

PATIENT
  Age: 79 Year
  Sex: Female

DRUGS (6)
  1. KCL-RETARD [Concomitant]
     Active Substance: POTASSIUM CHLORIDE
  2. BISOPROLOL FUMARATE. [Concomitant]
     Active Substance: BISOPROLOL FUMARATE
  3. KANRENOL [Concomitant]
     Active Substance: CANRENOATE POTASSIUM
  4. MAG 2 [Concomitant]
     Active Substance: MAGNESIUM CHLORIDE
  5. COUMADIN [Interacting]
     Active Substance: WARFARIN SODIUM
     Route: 048
  6. CLEXANE [Suspect]
     Active Substance: ENOXAPARIN SODIUM
     Route: 065

REACTIONS (2)
  - Drug interaction [Unknown]
  - Overdose [Unknown]
